FAERS Safety Report 16782371 (Version 1)
Quarter: 2019Q3

REPORT INFORMATION
  Report Type: Not Available
  Country: US (occurrence: US)
  Receive Date: 20190906
  Receipt Date: 20190906
  Transmission Date: 20191005
  Serious: Yes (Other)
  Sender: FDA-Public Use
  Company Number: US-ANIPHARMA-2019-US-016828

PATIENT
  Age: 73 Year
  Sex: Male

DRUGS (5)
  1. CASODEX [Suspect]
     Active Substance: BICALUTAMIDE
     Indication: PROSTATE CANCER METASTATIC
     Dosage: UNK
     Route: 065
     Dates: start: 20180517, end: 201810
  2. PROVENGE [Suspect]
     Active Substance: SIPULEUCEL-T
     Dosage: UNK
     Dates: end: 20181227
  3. ANDROGEN DEPRIVATION THERAPY (ADT) [Suspect]
     Active Substance: UNSPECIFIED INGREDIENT
     Dosage: UNK
  4. LUPRON [Suspect]
     Active Substance: LEUPROLIDE ACETATE
     Dosage: UNK
  5. ELIGARD [Suspect]
     Active Substance: LEUPROLIDE ACETATE
     Dosage: UNK
     Dates: start: 20180612

REACTIONS (4)
  - Hormone-refractory prostate cancer [Unknown]
  - Androgen deficiency [Not Recovered/Not Resolved]
  - Metastases to liver [Unknown]
  - Hydronephrosis [Unknown]

NARRATIVE: CASE EVENT DATE: 201810
